FAERS Safety Report 5931116-6 (Version None)
Quarter: 2008Q4

REPORT INFORMATION
  Report Type: 
  Country: None (occurrence: None)
  Receive Date: 20081027
  Receipt Date: 20081015
  Transmission Date: 20090506
  Serious: Yes (Other)
  Sender: FDA-Public Use
  Company Number: PHHY2008JP24955

PATIENT

DRUGS (1)
  1. GLEEVEC [Suspect]

REACTIONS (4)
  - BONE MARROW FAILURE [None]
  - GASTROINTESTINAL STROMAL TUMOUR [None]
  - GENERALISED OEDEMA [None]
  - SURGERY [None]
